FAERS Safety Report 18414364 (Version 1)
Quarter: 2020Q4

REPORT INFORMATION
  Report Type: Spontaneous
  Country: US (occurrence: US)
  Receive Date: 20201021
  Receipt Date: 20201021
  Transmission Date: 20210114
  Serious: Yes (Other)
  Sender: FDA-Public Use
  Company Number: None

PATIENT
  Age: 76 Year
  Sex: Male
  Weight: 56.78 kg

DRUGS (9)
  1. LORAZEPAM. [Concomitant]
     Active Substance: LORAZEPAM
     Dates: start: 20201006, end: 20201021
  2. LEVOFLOXACIN. [Suspect]
     Active Substance: LEVOFLOXACIN
     Indication: CELLULITIS
     Route: 048
     Dates: start: 20201010, end: 20201012
  3. OLANZAPINE. [Concomitant]
     Active Substance: OLANZAPINE
     Dates: start: 20201006, end: 20201021
  4. LEVOTHYROXINE. [Concomitant]
     Active Substance: LEVOTHYROXINE
     Dates: start: 20201006, end: 20201021
  5. MELATONIN [Concomitant]
     Active Substance: MELATONIN
     Dates: start: 20201006, end: 20201021
  6. QUETIAPINE. [Concomitant]
     Active Substance: QUETIAPINE
     Dates: start: 20201006, end: 20201021
  7. HALOPERIDOL. [Concomitant]
     Active Substance: HALOPERIDOL
     Dates: start: 20201006, end: 20201021
  8. ALLOPURINOL. [Concomitant]
     Active Substance: ALLOPURINOL
     Dates: start: 20201008, end: 20201021
  9. DONEPEZIL. [Concomitant]
     Active Substance: DONEPEZIL
     Dates: start: 20201006, end: 20201021

REACTIONS (5)
  - Therapy interrupted [None]
  - Renal impairment [None]
  - Delusion [None]
  - Agitation [None]
  - Aggression [None]

NARRATIVE: CASE EVENT DATE: 20201013
